FAERS Safety Report 13428013 (Version 3)
Quarter: 2017Q3

REPORT INFORMATION
  Report Type: Report from Study
  Country: FR (occurrence: FR)
  Receive Date: 20170411
  Receipt Date: 20170721
  Transmission Date: 20171127
  Serious: Yes (Death, Hospitalization, Other)
  Sender: FDA-Public Use
  Company Number: FR-TAIHO ONCOLOGY INC-JPTT170265

PATIENT
  Age: 69 Year
  Sex: Female
  Weight: 46 kg

DRUGS (11)
  1. LEVOTHYROXINE SODIUM. [Concomitant]
     Active Substance: LEVOTHYROXINE SODIUM
     Indication: HYPOTHYROIDISM
     Dosage: 75 MICROG, QD
     Route: 048
  2. SKENAN [Concomitant]
     Active Substance: MORPHINE SULFATE
     Indication: ABDOMINAL PAIN
     Dosage: 40 MG, BID
     Route: 048
  3. INNOHEP [Concomitant]
     Active Substance: TINZAPARIN SODIUM
     Indication: PROPHYLAXIS
     Dosage: 12000 IU, QD
     Route: 051
     Dates: start: 201607
  4. INNOHEP [Concomitant]
     Active Substance: TINZAPARIN SODIUM
     Indication: EMBOLISM
     Route: 065
  5. PRIMPERAN [Concomitant]
     Active Substance: METOCLOPRAMIDE HYDROCHLORIDE
     Indication: VOMITING
     Route: 065
  6. BISOPROLOL FUMARATE. [Concomitant]
     Active Substance: BISOPROLOL FUMARATE
     Indication: HYPERTENSION
     Dosage: 5 MG, QD
     Route: 048
  7. PRIMPERAN [Concomitant]
     Active Substance: METOCLOPRAMIDE HYDROCHLORIDE
     Indication: NAUSEA
     Dosage: 10 MG, PRN
     Route: 048
     Dates: start: 201701
  8. SOLUPRED [Concomitant]
     Active Substance: PREDNISOLONE
     Indication: ABDOMINAL PAIN
     Dosage: 80 MG, QD
     Route: 048
     Dates: end: 20170221
  9. LONSURF [Suspect]
     Active Substance: TIPIRACIL HYDROCHLORIDE\TRIFLURIDINE
     Indication: COLON CANCER METASTATIC
     Dosage: 50 MG (35 MG/M2) BID ON DAYS 1-5 AND 8-12 OF EACH 28-DAY CYCLE
     Route: 048
     Dates: start: 20170130, end: 20170210
  10. SKENAN [Concomitant]
     Active Substance: MORPHINE SULFATE
     Dosage: 10 MG, PRN
     Route: 048
  11. LYRICA [Concomitant]
     Active Substance: PREGABALIN
     Indication: ABDOMINAL PAIN
     Dosage: 50 MG, BID
     Route: 048

REACTIONS (1)
  - Malignant neoplasm progression [Fatal]

NARRATIVE: CASE EVENT DATE: 20170221
